FAERS Safety Report 22679916 (Version 5)
Quarter: 2024Q4

REPORT INFORMATION
  Report Type: Spontaneous
  Country: US (occurrence: US)
  Receive Date: 20230707
  Receipt Date: 20241125
  Transmission Date: 20250115
  Serious: No
  Sender: BIOGEN
  Company Number: US-BIOGEN-2023BI01210520

PATIENT
  Sex: Female

DRUGS (1)
  1. TYSABRI [Suspect]
     Active Substance: NATALIZUMAB
     Indication: Multiple sclerosis
     Route: 050
     Dates: start: 20190318

REACTIONS (4)
  - Product dose omission issue [Unknown]
  - Inappropriate schedule of product administration [Unknown]
  - Malaise [Unknown]
  - Feeling abnormal [Unknown]
